FAERS Safety Report 21210387 (Version 1)
Quarter: 2022Q3

REPORT INFORMATION
  Report Type: Spontaneous
  Country: US (occurrence: US)
  Receive Date: 20220815
  Receipt Date: 20220815
  Transmission Date: 20221027
  Serious: Yes (Other)
  Sender: FDA-Public Use
  Company Number: US-JNJFOC-20220820449

PATIENT
  Age: 43 Year
  Sex: Male
  Weight: 85.352 kg

DRUGS (3)
  1. INVEGA SUSTENNA [Suspect]
     Active Substance: PALIPERIDONE PALMITATE
     Indication: Bipolar disorder
     Route: 030
  2. INVEGA SUSTENNA [Suspect]
     Active Substance: PALIPERIDONE PALMITATE
  3. INVEGA SUSTENNA [Suspect]
     Active Substance: PALIPERIDONE PALMITATE

REACTIONS (7)
  - Erectile dysfunction [Unknown]
  - Akathisia [Unknown]
  - Ejaculation failure [Unknown]
  - Motor dysfunction [Unknown]
  - Full blood count abnormal [Unknown]
  - Hepatic enzyme increased [Unknown]
  - Off label use [Unknown]
